FAERS Safety Report 9696419 (Version 1)
Quarter: 2013Q4

REPORT INFORMATION
  Report Type: Spontaneous
  Country: US (occurrence: US)
  Receive Date: 20131119
  Receipt Date: 20131119
  Transmission Date: 20140711
  Serious: Yes (Other)
  Sender: FDA-Public Use
  Company Number: US-PFIZER INC-2013328360

PATIENT
  Age: 52 Year
  Sex: Male
  Weight: 95.24 kg

DRUGS (1)
  1. LYRICA [Suspect]
     Indication: NERVOUS SYSTEM DISORDER
     Dosage: 150MG IN MORNING AND 600MG AT BED TIME
     Route: 048
     Dates: start: 2005

REACTIONS (3)
  - Intervertebral disc disorder [Unknown]
  - Intervertebral disc degeneration [Unknown]
  - Spinal disorder [Unknown]
